FAERS Safety Report 20777682 (Version 2)
Quarter: 2022Q2

REPORT INFORMATION
  Report Type: Spontaneous
  Country: US (occurrence: US)
  Receive Date: 20220503
  Receipt Date: 20220513
  Transmission Date: 20220721
  Serious: Yes (Other)
  Sender: FDA-Public Use
  Company Number: US-AUROBINDO-AUR-APL-2022-012446

PATIENT

DRUGS (1)
  1. ATOMOXETINE [Suspect]
     Active Substance: ATOMOXETINE
     Indication: Attention deficit hyperactivity disorder
     Dosage: UNK
     Route: 065

REACTIONS (7)
  - Hepatic pain [Unknown]
  - Pain in extremity [Unknown]
  - Cardiac disorder [Unknown]
  - Dizziness [Unknown]
  - Eye disorder [Unknown]
  - Asthenia [Unknown]
  - Pain [Unknown]
